FAERS Safety Report 19899969 (Version 1)
Quarter: 2021Q3

REPORT INFORMATION
  Report Type: Spontaneous
  Country: US (occurrence: US)
  Receive Date: 20210929
  Receipt Date: 20210929
  Transmission Date: 20211014
  Serious: No
  Sender: FDA-Public Use
  Company Number: None

PATIENT

DRUGS (2)
  1. FENTANYL. [Suspect]
     Active Substance: FENTANYL
  2. VERSED [Suspect]
     Active Substance: MIDAZOLAM HYDROCHLORIDE

REACTIONS (2)
  - Intercepted product dispensing error [None]
  - Product label on wrong product [None]
